FAERS Safety Report 8913235 (Version 1)
Quarter: 2012Q4

REPORT INFORMATION
  Report Type: 
  Country: US (occurrence: US)
  Receive Date: 20121119
  Receipt Date: 20121119
  Transmission Date: 20130627
  Serious: Yes (Death, Other)
  Sender: FDA-Public Use
  Company Number: US-ROXANE LABORATORIES, INC.-2012-RO-02368RO

PATIENT
  Age: 38 Year
  Sex: Male

DRUGS (3)
  1. MORPHINE [Suspect]
  2. IBOGAINE [Suspect]
     Indication: DRUG DETOXIFICATION
  3. COCAINE [Suspect]

REACTIONS (2)
  - Pulmonary embolism [Fatal]
  - Subcutaneous abscess [Unknown]
